FAERS Safety Report 4466681-1 (Version None)
Quarter: 2004Q4

REPORT INFORMATION
  Report Type: 
  Country: None (occurrence: None)
  Receive Date: 20041004
  Receipt Date: 20040921
  Transmission Date: 20050328
  Serious: Yes (Hospitalization)
  Sender: FDA-Public Use
  Company Number: A-CH2004-07466

PATIENT
  Age: 81 Year
  Sex: Male

DRUGS (5)
  1. ZAVESCA [Suspect]
     Indication: GAUCHER'S DISEASE
     Dosage: 100 MG, BID, ORAL
     Route: 048
     Dates: start: 20040214
  2. SINEMET [Concomitant]
  3. ENTACAPONE (ENTACAPONE) [Concomitant]
  4. COPICLONE (COPICLONE) [Concomitant]
  5. ZOPICLONE [Concomitant]

REACTIONS (3)
  - CONDITION AGGRAVATED [None]
  - CONFUSIONAL STATE [None]
  - TREMOR [None]
